FAERS Safety Report 22121503 (Version 1)
Quarter: 2023Q1

REPORT INFORMATION
  Report Type: Spontaneous
  Country: US (occurrence: None)
  Receive Date: 20230321
  Receipt Date: 20230321
  Transmission Date: 20230418
  Serious: No
  Sender: FDA-Public Use
  Company Number: None

PATIENT
  Age: 58 Year
  Sex: Female
  Weight: 90 kg

DRUGS (23)
  1. SOLIFENACIN [Suspect]
     Active Substance: SOLIFENACIN
     Indication: Hypertonic bladder
     Dosage: 1 TABLET ORAL
     Route: 048
     Dates: start: 20221231, end: 20230210
  2. OMEPRAZOLE [Concomitant]
     Active Substance: OMEPRAZOLE
  3. FENOFIBRATE [Concomitant]
     Active Substance: FENOFIBRATE
  4. PREGABALIN [Concomitant]
     Active Substance: PREGABALIN
  5. LOSARTAN [Concomitant]
     Active Substance: LOSARTAN
  6. ROSUVASTATIN [Concomitant]
     Active Substance: ROSUVASTATIN
  7. ALPRAZOLAM [Concomitant]
     Active Substance: ALPRAZOLAM
  8. FLUOXETINE [Concomitant]
     Active Substance: FLUOXETINE HYDROCHLORIDE
  9. BUPROPION [Concomitant]
     Active Substance: BUPROPION
  10. Terbinafine Hydrocholoride [Concomitant]
  11. NYSTATIN [Concomitant]
     Active Substance: NYSTATIN
  12. AMMONIUM LACTATE [Concomitant]
     Active Substance: AMMONIUM LACTATE
  13. Ceylon Cinnamon [Concomitant]
  14. HERBALS\TURMERIC [Concomitant]
     Active Substance: HERBALS\TURMERIC
  15. CURCUMIN [Concomitant]
     Active Substance: CURCUMIN
  16. LEVOCARNITINE [Concomitant]
     Active Substance: LEVOCARNITINE
  17. ALPHA LIPOIC ACID [Concomitant]
     Active Substance: .ALPHA.-LIPOIC ACID
  18. PRIMROSE OIL [Concomitant]
  19. FISH OIL [Concomitant]
     Active Substance: FISH OIL
  20. Vitamin E [Concomitant]
  21. VITAMIN D3 [Concomitant]
     Active Substance: CHOLECALCIFEROL
  22. B12 [Concomitant]
  23. MAGNESIUM [Concomitant]
     Active Substance: MAGNESIUM

REACTIONS (4)
  - Micturition disorder [None]
  - Enuresis [None]
  - Dry mouth [None]
  - Therapy cessation [None]

NARRATIVE: CASE EVENT DATE: 20230210
